FAERS Safety Report 9370178 (Version 2)
Quarter: 2019Q4

REPORT INFORMATION
  Report Type: Spontaneous
  Country: US (occurrence: US)
  Receive Date: 20130626
  Receipt Date: 20191219
  Transmission Date: 20200122
  Serious: Yes (Other)
  Sender: FDA-Public Use
  Company Number: US-UCBSA-089479

PATIENT

DRUGS (2)
  1. CIMZIA [Suspect]
     Active Substance: CERTOLIZUMAB PEGOL
     Dosage: UNKNOWN DOSE
  2. REMICADE [Concomitant]
     Active Substance: INFLIXIMAB
     Dosage: UNKNOWN DOSE

REACTIONS (1)
  - Meningitis [Unknown]
